FAERS Safety Report 24004713 (Version 2)
Quarter: 2024Q4

REPORT INFORMATION
  Report Type: Spontaneous
  Country: JP (occurrence: JP)
  Receive Date: 20240624
  Receipt Date: 20241220
  Transmission Date: 20250114
  Serious: Yes (Other)
  Sender: BAYER HEALTHCARE PHARMACEUTICALS INC.
  Company Number: JP-BAYER-2023A172592

PATIENT
  Age: 69 Year
  Sex: Male
  Weight: 58 kg

DRUGS (4)
  1. NUBEQA [Suspect]
     Active Substance: DAROLUTAMIDE
     Indication: Prostate cancer metastatic
     Dosage: DAILY DOSE 1200 MG
     Dates: start: 20230914
  2. NUBEQA [Suspect]
     Active Substance: DAROLUTAMIDE
     Indication: Prostate cancer metastatic
     Dosage: DAILY DOSE 600 MG
  3. NUBEQA [Suspect]
     Active Substance: DAROLUTAMIDE
     Indication: Prostate cancer metastatic
     Dosage: DAILY DOSE 1200 MG
  4. DOCETAXEL [Concomitant]
     Active Substance: DOCETAXEL
     Indication: Prostate cancer metastatic
     Dosage: UNK

REACTIONS (4)
  - Prostate cancer metastatic [Recovering/Resolving]
  - Prostatic specific antigen increased [Recovering/Resolving]
  - Hepatic function abnormal [Recovered/Resolved]
  - Therapy non-responder [None]

NARRATIVE: CASE EVENT DATE: 20240111
